FAERS Safety Report 6276743-4 (Version None)
Quarter: 2009Q3

REPORT INFORMATION
  Report Type: 
  Country: None (occurrence: None)
  Receive Date: 20090722
  Receipt Date: 20080806
  Transmission Date: 20100115
  Serious: Yes (Hospitalization, Other)
  Sender: FDA-Public Use
  Company Number: US-BRISTOL-MYERS SQUIBB COMPANY-14291272

PATIENT
  Age: 53 Year
  Sex: Female
  Weight: 52 kg

DRUGS (7)
  1. COUMADIN [Suspect]
     Indication: HEART VALVE REPLACEMENT
     Dates: start: 20030323
  2. KLONOPIN [Concomitant]
  3. LUNESTA [Concomitant]
     Dosage: 4MG HS.
  4. KEPPRA [Concomitant]
     Dosage: 500 MG IN THE MORNING AND 1000MG AT BED TIME
  5. PHENERGAN [Concomitant]
  6. VERAPAMIL [Concomitant]
  7. MULTI-VITAMINS [Concomitant]

REACTIONS (6)
  - CONTUSION [None]
  - DIZZINESS [None]
  - DRUG TOXICITY [None]
  - HAEMATOMA [None]
  - HAEMORRHAGE [None]
  - INTERNATIONAL NORMALISED RATIO INCREASED [None]
